FAERS Safety Report 6825634-6 (Version None)
Quarter: 2010Q3

REPORT INFORMATION
  Report Type: 
  Country: None (occurrence: None)
  Receive Date: 20100709
  Receipt Date: 20100106
  Transmission Date: 20110219
  Serious: Yes (Other)
  Sender: FDA-Public Use
  Company Number: US-ASTRAZENECA-2009UW14570

PATIENT
  Age: 55 Year
  Sex: Male
  Weight: 134.7 kg

DRUGS (6)
  1. SEROQUEL [Suspect]
     Indication: SLEEP DISORDER
     Route: 048
     Dates: start: 20020724
  2. PAXIL [Concomitant]
  3. ZYPREXA [Concomitant]
     Dates: start: 20010101
  4. DEPAKOTE [Concomitant]
     Indication: BIPOLAR DISORDER
     Dates: start: 19980101
  5. RISPERDAL [Concomitant]
     Dates: start: 19980101
  6. THORAZINE [Concomitant]
     Dates: start: 19980101

REACTIONS (12)
  - CARDIAC DISORDER [None]
  - CHEST PAIN [None]
  - GASTROINTESTINAL DISORDER [None]
  - HYPERGLYCAEMIA [None]
  - MYOPATHY [None]
  - NEPHROPATHY [None]
  - NEUROPATHY PERIPHERAL [None]
  - RENAL FAILURE [None]
  - RETINOPATHY [None]
  - TARDIVE DYSKINESIA [None]
  - TYPE 2 DIABETES MELLITUS [None]
  - VASCULITIS [None]
